FAERS Safety Report 13778534 (Version 4)
Quarter: 2018Q2

REPORT INFORMATION
  Report Type: Report from Study
  Country: US (occurrence: US)
  Receive Date: 20170721
  Receipt Date: 20180607
  Transmission Date: 20180711
  Serious: Yes (Hospitalization, Other)
  Sender: FDA-Public Use
  Company Number: US-ACTELION-A-US2016-147037

PATIENT
  Age: 73 Year
  Sex: Female
  Weight: 57.14 kg

DRUGS (1)
  1. OPSUMIT [Suspect]
     Active Substance: MACITENTAN
     Indication: PULMONARY ARTERIAL HYPERTENSION
     Dosage: 10 MG, QD
     Route: 048
     Dates: start: 20161114

REACTIONS (13)
  - Epistaxis [Unknown]
  - Dyspnoea [Unknown]
  - Chronic obstructive pulmonary disease [Unknown]
  - Diabetes mellitus [Unknown]
  - Hypoaesthesia [Unknown]
  - Pulmonary fibrosis [Unknown]
  - Paraesthesia [Unknown]
  - Onychoclasis [Unknown]
  - Candida infection [Unknown]
  - Cough [Unknown]
  - Dizziness [Unknown]
  - Abdominal pain upper [Unknown]
  - Condition aggravated [Unknown]
